FAERS Safety Report 10080768 (Version 1)
Quarter: 2014Q2

REPORT INFORMATION
  Report Type: Spontaneous
  Country: US (occurrence: US)
  Receive Date: 20140416
  Receipt Date: 20140416
  Transmission Date: 20141212
  Serious: Yes (Hospitalization, Other)
  Sender: FDA-Public Use
  Company Number: US-AMGEN INC.-USASP2014027349

PATIENT
  Age: 64 Year
  Sex: Male

DRUGS (2)
  1. ENBREL [Suspect]
     Indication: PSORIATIC ARTHROPATHY
     Dosage: UNK UNK, QWK
     Route: 065
     Dates: start: 2009, end: 201402
  2. ENBREL [Suspect]
     Indication: PSORIASIS

REACTIONS (10)
  - Vomiting [Unknown]
  - Night sweats [Unknown]
  - Alcohol withdrawal syndrome [Recovered/Resolved]
  - Atrial fibrillation [Not Recovered/Not Resolved]
  - Hyperhidrosis [Recovered/Resolved]
  - Urticaria [Not Recovered/Not Resolved]
  - Musculoskeletal stiffness [Recovered/Resolved]
  - Neck pain [Unknown]
  - Skin mass [Not Recovered/Not Resolved]
  - Psoriasis [Not Recovered/Not Resolved]
